FAERS Safety Report 8919809 (Version 1)
Quarter: 2012Q4

REPORT INFORMATION
  Report Type: Spontaneous
  Country: PL (occurrence: None)
  Receive Date: 20121114
  Receipt Date: 20121114
  Transmission Date: 20130627
  Serious: No
  Sender: FDA-Public Use
  Company Number: 1211POL004118

PATIENT
  Age: 3 Year

DRUGS (1)
  1. CEDAX [Suspect]
     Indication: YERSINIA INFECTION

REACTIONS (2)
  - Drug prescribing error [None]
  - Off label use [None]
